FAERS Safety Report 26218193 (Version 1)
Quarter: 2025Q4

REPORT INFORMATION
  Report Type: Spontaneous
  Country: None (occurrence: EG)
  Receive Date: 20251231
  Receipt Date: 20251231
  Transmission Date: 20260118
  Serious: Yes (Other)
  Sender: HIKMA
  Company Number: EG-HIKMA PHARMACEUTICALS-EG-H14001-25-13861

PATIENT
  Age: 74 Year
  Sex: Female
  Weight: 69 kg

DRUGS (7)
  1. CARBOPLATIN [Suspect]
     Active Substance: CARBOPLATIN
     Indication: Triple negative breast cancer
     Dosage: 108 MILLIGRAM, WEEKLY
  2. CARBOPLATIN [Suspect]
     Active Substance: CARBOPLATIN
     Dosage: 108 MILLIGRAM, WEEKLY (DOSE 6, WEEK 6)
     Dates: start: 20251112
  3. PACLITAXEL [Suspect]
     Active Substance: PACLITAXEL
     Indication: Triple negative breast cancer
     Dosage: 120 MILLIGRAM, WEEKLY (OF 100MG/16.67 ML STRENGTH)
  4. PACLITAXEL [Suspect]
     Active Substance: PACLITAXEL
     Dosage: 120 MILLIGRAM, WEEKLY (OF 30 MG/ 5 ML STRENGTH)
  5. PACLITAXEL [Suspect]
     Active Substance: PACLITAXEL
     Dosage: 120 MILLIGRAM, WEEKLY (DOSE 6, WEEK 6) (OF 100MG/16.67 ML STRENGTH)
     Dates: start: 20251112
  6. PACLITAXEL [Suspect]
     Active Substance: PACLITAXEL
     Dosage: 120 MILLIGRAM, WEEKLY (DOSE 6, WEEK 6) (OF 30 MG/ 5 ML STRENGTH)
     Dates: start: 20251112
  7. AMLODIPINE BESYLATE\HYDROCHLOROTHIAZIDE\OLMESARTAN MEDOXOMIL [Concomitant]
     Active Substance: AMLODIPINE BESYLATE\HYDROCHLOROTHIAZIDE\OLMESARTAN MEDOXOMIL
     Indication: Hypertension
     Dosage: UNK
     Route: 065

REACTIONS (2)
  - Bone pain [Recovered/Resolved]
  - Neuropathy peripheral [Recovering/Resolving]

NARRATIVE: CASE EVENT DATE: 20251112
